FAERS Safety Report 5812196-5 (Version None)
Quarter: 2008Q3

REPORT INFORMATION
  Report Type: 
  Country: None (occurrence: None)
  Receive Date: 20080716
  Receipt Date: 20080701
  Transmission Date: 20090109
  Serious: Yes (Hospitalization)
  Sender: FDA-Public Use
  Company Number: JP-GENENTECH-264150

PATIENT
  Sex: Female
  Weight: 45.1 kg

DRUGS (4)
  1. BEVACIZUMAB [Suspect]
     Indication: COLORECTAL CANCER METASTATIC
     Dosage: 5 MG/KG, UNK
     Route: 041
     Dates: start: 20070824, end: 20080111
  2. IRINOTECAN HCL [Suspect]
     Indication: COLORECTAL CANCER METASTATIC
     Dosage: 180 MG, UNK
     Route: 041
     Dates: start: 20070824, end: 20080111
  3. FLUOROURACIL [Suspect]
     Indication: COLORECTAL CANCER METASTATIC
     Dosage: 480 MG, UNK
     Route: 042
     Dates: start: 20070824, end: 20080113
  4. ISOVORIN [Suspect]
     Indication: COLORECTAL CANCER METASTATIC
     Dosage: 240 MG, UNK
     Route: 042
     Dates: start: 20070824, end: 20080111

REACTIONS (1)
  - HERPES VIRUS INFECTION [None]
